FAERS Safety Report 11568109 (Version 1)
Quarter: 2015Q3

REPORT INFORMATION
  Report Type: Spontaneous
  Country: CH (occurrence: CH)
  Receive Date: 20150929
  Receipt Date: 20150929
  Transmission Date: 20151125
  Serious: Yes (Life-Threatening, Hospitalization, Other)
  Sender: FDA-Public Use
  Company Number: CH-ELI_LILLY_AND_COMPANY-CH201509008422

PATIENT
  Sex: Female
  Weight: 60 kg

DRUGS (4)
  1. QUETIAPIN [Suspect]
     Active Substance: QUETIAPINE
     Indication: BIPOLAR DISORDER
     Dosage: 50 MG, QD
     Route: 048
     Dates: start: 20150623
  2. CIPRALEX [Suspect]
     Active Substance: ESCITALOPRAM OXALATE
     Indication: BIPOLAR DISORDER
     Dosage: 10 MG, QD
     Route: 048
     Dates: end: 201507
  3. ZYPREXA [Suspect]
     Active Substance: OLANZAPINE
     Indication: BIPOLAR DISORDER
     Dosage: 2.5 MG, QD
     Route: 048
     Dates: end: 201507
  4. EUTHYROX [Concomitant]
     Active Substance: LEVOTHYROXINE SODIUM
     Indication: HYPOTHYROIDISM
     Dosage: 50 UG, TID
     Route: 048

REACTIONS (10)
  - Acute hepatic failure [Recovering/Resolving]
  - Colitis [Unknown]
  - Hepatic necrosis [Recovering/Resolving]
  - Pleural effusion [Unknown]
  - Ascites [Unknown]
  - Gastrointestinal oedema [Unknown]
  - Benign hepatic neoplasm [Unknown]
  - Disseminated intravascular coagulation [Unknown]
  - Klebsiella sepsis [Unknown]
  - Jaundice [Recovering/Resolving]
